FAERS Safety Report 23486820 (Version 1)
Quarter: 2024Q1

REPORT INFORMATION
  Report Type: Report from Study
  Country: CN (occurrence: CN)
  Receive Date: 20240206
  Receipt Date: 20240206
  Transmission Date: 20240410
  Serious: Yes (Other)
  Sender: FDA-Public Use
  Company Number: CN-PFIZER INC-202400032656

PATIENT

DRUGS (5)
  1. LINEZOLID [Suspect]
     Active Substance: LINEZOLID
     Indication: Tuberculosis
     Dosage: UNK
  2. LINEZOLID [Suspect]
     Active Substance: LINEZOLID
     Dosage: 300 MG, 1X/DAY
  3. CYCLOSERINE [Suspect]
     Active Substance: CYCLOSERINE
     Indication: Tuberculosis
     Dosage: UNK
  4. CYCLOSERINE [Suspect]
     Active Substance: CYCLOSERINE
     Dosage: 250 MG, 1X/DAY
  5. PYRAZINAMIDE [Suspect]
     Active Substance: PYRAZINAMIDE
     Indication: Tuberculosis
     Dosage: UNK

REACTIONS (4)
  - Liver injury [Recovered/Resolved]
  - Anaemia [Recovered/Resolved]
  - Psychiatric symptom [Recovered/Resolved]
  - Nervous system disorder [Recovered/Resolved]
